FAERS Safety Report 8551004-9 (Version None)
Quarter: 2012Q3

REPORT INFORMATION
  Report Type: 
  Country: None (occurrence: None)
  Receive Date: 20120730
  Receipt Date: 20111228
  Transmission Date: 20120928
  Serious: No
  Sender: FDA-Public Use
  Company Number: US-ALLERGAN-1116908US

PATIENT
  Age: 57 Year
  Sex: Female

DRUGS (3)
  1. LATISSE [Suspect]
     Dosage: 2 GTT, QPM
     Route: 047
     Dates: start: 20110901, end: 20110901
  2. LATISSE [Suspect]
     Indication: HYPOTRICHOSIS
     Dosage: 2 GTT, QPM
     Route: 061
     Dates: start: 20110701
  3. LATISSE [Suspect]
     Dosage: 2GTT, QPM
     Route: 061
     Dates: start: 20110101, end: 20111212

REACTIONS (2)
  - ERYTHEMA OF EYELID [None]
  - EYELID CYST [None]
